FAERS Safety Report 22270226 (Version 1)
Quarter: 2023Q2

REPORT INFORMATION
  Report Type: Spontaneous
  Country: US (occurrence: None)
  Receive Date: 20230428
  Receipt Date: 20230428
  Transmission Date: 20230721
  Serious: Yes (Hospitalization)
  Sender: FDA-Public Use
  Company Number: None

PATIENT
  Age: 57 Year
  Sex: Male
  Weight: 89.5 kg

DRUGS (1)
  1. IVERMECTIN [Suspect]
     Active Substance: IVERMECTIN
     Indication: COVID-19
     Dosage: FREQUENCY : DAILY;?
     Route: 048

REACTIONS (6)
  - Toxicity to various agents [None]
  - Nausea [None]
  - Vomiting [None]
  - Mental status changes [None]
  - Incorrect dose administered [None]
  - Hypersensitivity [None]

NARRATIVE: CASE EVENT DATE: 20220608
